FAERS Safety Report 4550389-8 (Version None)
Quarter: 2005Q1

REPORT INFORMATION
  Report Type: 
  Country: None (occurrence: None)
  Receive Date: 20041227
  Receipt Date: 20040921
  Transmission Date: 20050727
  Serious: No
  Sender: FDA-Public Use
  Company Number: US092292

PATIENT
  Age: 95 Year
  Sex: Male

DRUGS (3)
  1. ARANESP [Suspect]
     Indication: MYELODYSPLASTIC SYNDROME
     Dates: start: 20031101, end: 20031201
  2. PROCRIT [Suspect]
     Indication: MYELODYSPLASTIC SYNDROME
     Dosage: 40000 IU, 1 IN 1 WEEKS
     Dates: start: 20030101
  3. BLOOD CELLS PACKED HUMAN [Concomitant]

REACTIONS (2)
  - DRUG INEFFECTIVE [None]
  - SQUAMOUS CELL CARCINOMA OF SKIN [None]
